FAERS Safety Report 8383746-2 (Version None)
Quarter: 2012Q1

REPORT INFORMATION
  Report Type: 
  Country: None (occurrence: None)
  Receive Date: 20120323
  Receipt Date: 20110408
  Transmission Date: 20120608
  Serious: Yes (Hospitalization, Other)
  Sender: FDA-Public Use
  Company Number: 163-21880-11030562

PATIENT

DRUGS (2)
  1. REVLIMID [Suspect]
     Indication: AMYLOIDOSIS
     Dosage: 10 MG, 1 IN 1 D, PO 10 MG, DAILY FOR 28 DAYS, PO
     Route: 048
     Dates: start: 20110303
  2. REVLIMID [Suspect]
     Indication: AMYLOIDOSIS
     Dosage: 10 MG, 1 IN 1 D, PO 10 MG, DAILY FOR 28 DAYS, PO
     Route: 048
     Dates: start: 20101101

REACTIONS (4)
  - DYSPNOEA [None]
  - THROMBOCYTOPENIA [None]
  - BRONCHITIS [None]
  - PULMONARY OEDEMA [None]
